FAERS Safety Report 11092209 (Version 3)
Quarter: 2015Q3

REPORT INFORMATION
  Report Type: Spontaneous
  Country: FI (occurrence: FI)
  Receive Date: 20150506
  Receipt Date: 20150710
  Transmission Date: 20151125
  Serious: Yes (Hospitalization, Other)
  Sender: FDA-Public Use
  Company Number: FI-AMGEN-FINSP2015042327

PATIENT
  Age: 53 Year
  Sex: Male

DRUGS (3)
  1. BURANA [Concomitant]
     Active Substance: IBUPROFEN
     Dosage: OCCASIONAL USE
  2. PANADOL                            /00020001/ [Concomitant]
     Dosage: OCCASIONAL USE
  3. ENBREL [Suspect]
     Active Substance: ETANERCEPT
     Indication: PSORIASIS
     Dosage: 50 MG, 2X/WEEK
     Route: 065
     Dates: start: 201501, end: 20150216

REACTIONS (2)
  - Radiculopathy [Not Recovered/Not Resolved]
  - Polyneuropathy [Not Recovered/Not Resolved]

NARRATIVE: CASE EVENT DATE: 20150218
